FAERS Safety Report 6054400-7 (Version None)
Quarter: 2009Q1

REPORT INFORMATION
  Report Type: 
  Country: None (occurrence: None)
  Receive Date: 20090127
  Receipt Date: 20090119
  Transmission Date: 20090719
  Serious: Yes (Other)
  Sender: FDA-Public Use
  Company Number: PHHY2009BR02042

PATIENT
  Age: 16 Year
  Sex: Female

DRUGS (1)
  1. TEGRETOL [Suspect]

REACTIONS (5)
  - AGGRESSION [None]
  - ATAXIA [None]
  - PALLOR [None]
  - SUICIDE ATTEMPT [None]
  - VOMITING [None]
